FAERS Safety Report 7034000-2 (Version None)
Quarter: 2010Q4

REPORT INFORMATION
  Report Type: 
  Country: None (occurrence: None)
  Receive Date: 20101007
  Receipt Date: 20100930
  Transmission Date: 20110411
  Serious: Yes (Death, Hospitalization)
  Sender: FDA-Public Use
  Company Number: PHHY2010CN64477

PATIENT
  Sex: Female

DRUGS (1)
  1. TRILEPTAL [Suspect]
     Indication: EPILEPSY
     Dosage: UNK

REACTIONS (15)
  - AZOTAEMIA [None]
  - DIABETES MELLITUS [None]
  - EYELID OEDEMA [None]
  - HYPERTENSION [None]
  - LETHARGY [None]
  - MULTI-ORGAN FAILURE [None]
  - NEURALGIA [None]
  - PLEURAL EFFUSION [None]
  - PRURITUS [None]
  - PYREXIA [None]
  - RENAL ATROPHY [None]
  - SPLENOMEGALY [None]
  - SYSTEMIC LUPUS ERYTHEMATOSUS [None]
  - VISUAL ACUITY REDUCED [None]
  - VOMITING [None]
